FAERS Safety Report 6358628-8 (Version None)
Quarter: 2009Q3

REPORT INFORMATION
  Report Type: 
  Country: None (occurrence: None)
  Receive Date: 20090914
  Receipt Date: 20090903
  Transmission Date: 20100115
  Serious: Yes (Hospitalization, Other)
  Sender: FDA-Public Use
  Company Number: 1000006731

PATIENT
  Age: 88 Year
  Sex: Female
  Weight: 77 kg

DRUGS (8)
  1. BYSTOLIC [Suspect]
     Indication: HYPERTENSION
     Dosage: 5 MG, (5 MG, 1 IN 1 D), ORAL
     Route: 048
     Dates: start: 20090525, end: 20090531
  2. VERAPAMIL [Suspect]
     Indication: HYPERTENSION
     Dosage: 240 MG, (240 MG, 1 IN 1 D), ORAL
     Route: 048
  3. ASPIRIN (81 MILLIGRAM) [Concomitant]
  4. MULTI-VITAMIN [Concomitant]
  5. ASCORBIC ACID [Concomitant]
  6. STOOL SOFTENER (NOS) [Concomitant]
  7. IBUPROFEN [Concomitant]
  8. LISINOPRIL AND HYDROCHLOROTHIAZIDE [Concomitant]

REACTIONS (6)
  - ATRIOVENTRICULAR BLOCK FIRST DEGREE [None]
  - DIZZINESS [None]
  - DRUG INTERACTION [None]
  - LETHARGY [None]
  - RENAL FAILURE ACUTE [None]
  - SINUS BRADYCARDIA [None]
